FAERS Safety Report 7163698-3 (Version None)
Quarter: 2010Q4

REPORT INFORMATION
  Report Type: 
  Country: None (occurrence: None)
  Receive Date: 20101215
  Receipt Date: 20100528
  Transmission Date: 20110411
  Serious: Yes (Other)
  Sender: FDA-Public Use
  Company Number: CH-PFIZER INC-2010067812

PATIENT
  Age: 19 Year
  Sex: Female

DRUGS (4)
  1. LYRICA [Suspect]
     Indication: PAIN
     Dosage: 200 MG, 1X/DAY
     Dates: start: 20080101, end: 20100105
  2. LYRICA [Suspect]
     Dosage: 125 MG, 1X/DAY
     Dates: start: 20100106, end: 20100114
  3. NEURONTIN [Suspect]
     Indication: PAIN
     Dosage: 200 MG, 1X/DAY
     Dates: start: 20100115, end: 20100224
  4. CIPRALEX [Suspect]
     Indication: DEPRESSION
     Dosage: 2 DF, 1X/DAY
     Dates: start: 20080101, end: 20100224

REACTIONS (4)
  - ABORTION [None]
  - ABORTION SPONTANEOUS [None]
  - DRUG EXPOSURE DURING PREGNANCY [None]
  - PREGNANCY [None]
